FAERS Safety Report 17977926 (Version 3)
Quarter: 2022Q2

REPORT INFORMATION
  Report Type: Spontaneous
  Country: AR (occurrence: AR)
  Receive Date: 20200703
  Receipt Date: 20220628
  Transmission Date: 20220721
  Serious: Yes (Death, Hospitalization, Other)
  Sender: FDA-Public Use
  Company Number: AR-GLAXOSMITHKLINE-AR2020AMR114127

PATIENT

DRUGS (1)
  1. BENLYSTA [Suspect]
     Active Substance: BELIMUMAB
     Indication: Systemic lupus erythematosus
     Dosage: UNK
     Dates: start: 201810

REACTIONS (7)
  - Death [Fatal]
  - Hospitalisation [Unknown]
  - Systemic lupus erythematosus [Unknown]
  - Transient ischaemic attack [Unknown]
  - Anaemia [Unknown]
  - Fatigue [Unknown]
  - Urinary tract infection [Unknown]
